FAERS Safety Report 22139291 (Version 4)
Quarter: 2023Q2

REPORT INFORMATION
  Report Type: Report from Study
  Country: US (occurrence: US)
  Receive Date: 20230327
  Receipt Date: 20230519
  Transmission Date: 20230722
  Serious: No
  Sender: FDA-Public Use
  Company Number: US-BIOVITRUM-2023-US-005775

PATIENT
  Age: 73 Year
  Sex: Female

DRUGS (3)
  1. DOPTELET [Suspect]
     Active Substance: AVATROMBOPAG MALEATE
     Indication: Platelet count decreased
     Route: 048
  2. DOPTELET [Suspect]
     Active Substance: AVATROMBOPAG MALEATE
     Route: 048
  3. DOPTELET [Suspect]
     Active Substance: AVATROMBOPAG MALEATE
     Route: 048

REACTIONS (5)
  - Hair growth abnormal [Unknown]
  - Pruritus [Unknown]
  - Rash [Unknown]
  - Platelet count decreased [Unknown]
  - Blister [Unknown]

NARRATIVE: CASE EVENT DATE: 20230101
